FAERS Safety Report 23323772 (Version 1)
Quarter: 2023Q4

REPORT INFORMATION
  Report Type: Spontaneous
  Country: US (occurrence: US)
  Receive Date: 20231220
  Receipt Date: 20231220
  Transmission Date: 20240110
  Serious: No
  Sender: FDA-Public Use
  Company Number: US-GSK-US2023173328

PATIENT
  Sex: Male

DRUGS (1)
  1. NUCALA [Suspect]
     Active Substance: MEPOLIZUMAB
     Indication: Nasal polyps
     Dosage: UNK,NUCALA SUBCUTANEOUS SOLUTION RECONSTITUTED 100 MG
     Route: 058
     Dates: start: 20230915

REACTIONS (2)
  - Therapy cessation [Not Recovered/Not Resolved]
  - Drug ineffective [Unknown]
